FAERS Safety Report 4265119-7 (Version None)
Quarter: 2004Q1

REPORT INFORMATION
  Report Type: 
  Country: None (occurrence: None)
  Receive Date: 20040106
  Receipt Date: 20040106
  Transmission Date: 20041129
  Serious: No
  Sender: FDA-Public Use
  Company Number: None

PATIENT
  Age: 71 Year
  Sex: Female

DRUGS (1)
  1. ISOVUE-200 [Suspect]
     Dates: start: 20031204

REACTIONS (4)
  - COUGH [None]
  - DYSPNOEA [None]
  - ORAL PRURITUS [None]
  - THROAT IRRITATION [None]
